FAERS Safety Report 5078811-1 (Version None)
Quarter: 2006Q3

REPORT INFORMATION
  Report Type: 
  Country: None (occurrence: None)
  Receive Date: 20060809
  Receipt Date: 20060801
  Transmission Date: 20061208
  Serious: Yes (Other)
  Sender: FDA-Public Use
  Company Number: TPA2006A01236

PATIENT
  Age: 79 Year
  Sex: Female
  Weight: 104.3273 kg

DRUGS (7)
  1. ACTOS [Suspect]
     Indication: DIABETES MELLITUS NON-INSULIN-DEPENDENT
     Dosage: SEE IMAGE
     Route: 048
     Dates: start: 20000101, end: 20060626
  2. ACTOS [Suspect]
     Indication: DIABETES MELLITUS NON-INSULIN-DEPENDENT
     Dosage: SEE IMAGE
     Route: 048
     Dates: start: 20060719
  3. ZESTRIL [Suspect]
     Dosage: 10 MG, 1 IN 1 D, PER ORAL
     Route: 048
     Dates: start: 19970101, end: 20060627
  4. CLIDINIUM [Concomitant]
  5. LESCOL [Concomitant]
  6. SUPER B COMPLEX VITAMINS (VITAMINS, OTHER COMBINATIONS) [Concomitant]
  7. OS-CAL (ERGOCALCIFEROL, CALCIUM) [Concomitant]

REACTIONS (3)
  - BLOOD POTASSIUM INCREASED [None]
  - CATARACT [None]
  - WEIGHT INCREASED [None]
